FAERS Safety Report 8510145-2 (Version None)
Quarter: 2012Q3

REPORT INFORMATION
  Report Type: 
  Country: None (occurrence: None)
  Receive Date: 20120713
  Receipt Date: 20120710
  Transmission Date: 20120928
  Serious: Yes (Hospitalization)
  Sender: FDA-Public Use
  Company Number: DE-ROCHE-1087826

PATIENT
  Age: 90 Year
  Sex: Female

DRUGS (2)
  1. LUCENTIS [Suspect]
     Indication: PRODUCT USED FOR UNKNOWN INDICATION
     Route: 050
     Dates: start: 20120327
  2. LUCENTIS [Suspect]
     Route: 050
     Dates: start: 20120524

REACTIONS (2)
  - ABDOMINAL DISCOMFORT [None]
  - GENERAL PHYSICAL HEALTH DETERIORATION [None]
